FAERS Safety Report 10153102 (Version 1)
Quarter: 2014Q2

REPORT INFORMATION
  Report Type: Report from Study
  Country: GB (occurrence: GB)
  Receive Date: 20140505
  Receipt Date: 20140505
  Transmission Date: 20141212
  Serious: Yes (Hospitalization)
  Sender: FDA-Public Use
  Company Number: GB-B.I. PHARMACEUTICALS,INC./RIDGEFIELD-2014-BI-18972UK

PATIENT
  Age: 51 Year
  Sex: Female

DRUGS (2)
  1. AFATINIB [Suspect]
     Indication: NON-SMALL CELL LUNG CANCER
     Route: 065
  2. FLUCLOXACILINA (FLUCLOXACILIN) (NOT SPECIFIED) [Suspect]
     Indication: CELLULITIS
     Dosage: 4 G
     Route: 042
     Dates: start: 20140417, end: 20140422

REACTIONS (1)
  - Cellulitis [Recovered/Resolved]
